FAERS Safety Report 7554951-X (Version None)
Quarter: 2011Q2

REPORT INFORMATION
  Report Type: 
  Country: None (occurrence: None)
  Receive Date: 20110615
  Receipt Date: 20110615
  Transmission Date: 20111010
  Serious: Yes (Life-Threatening, Hospitalization, Disabling)
  Sender: FDA-Public Use
  Company Number: None

PATIENT
  Age: 33 Year
  Sex: Female
  Weight: 68.0396 kg

DRUGS (1)
  1. MIRENA [Suspect]
     Indication: CONTRACEPTION
     Dosage: LEVONORGESTREL IS 20 MCG PER DAY INTRA-UTERINE
     Route: 015
     Dates: start: 20110125, end: 20110527

REACTIONS (6)
  - PELVIC INFLAMMATORY DISEASE [None]
  - DEVICE RELATED INFECTION [None]
  - INFECTION [None]
  - UTERINE INFECTION [None]
  - SEPSIS [None]
  - OVARIAN CYST RUPTURED [None]
